FAERS Safety Report 25005416 (Version 2)
Quarter: 2025Q3

REPORT INFORMATION
  Report Type: Spontaneous
  Country: US (occurrence: US)
  Receive Date: 20250224
  Receipt Date: 20250802
  Transmission Date: 20251020
  Serious: Yes (Life-Threatening, Other)
  Sender: ALEXION PHARMACEUTICALS
  Company Number: US-AstraZeneca-CH-00810159A

PATIENT
  Sex: Female

DRUGS (1)
  1. BREZTRI [Suspect]
     Active Substance: BUDESONIDE\FORMOTEROL\GLYCOPYRROLATE
     Route: 065

REACTIONS (6)
  - Arthropod bite [Unknown]
  - Airway complication of anaesthesia [Unknown]
  - Carpal tunnel syndrome [Unknown]
  - Lip swelling [Unknown]
  - Intentional product misuse [Unknown]
  - Respiratory arrest [Unknown]
